FAERS Safety Report 4300610-6 (Version None)
Quarter: 2004Q1

REPORT INFORMATION
  Report Type: 
  Country: None (occurrence: None)
  Receive Date: 20040219
  Receipt Date: 20040219
  Transmission Date: 20041129
  Serious: Yes (Life-Threatening, Hospitalization, Disabling, Other)
  Sender: FDA-Public Use
  Company Number: None

PATIENT
  Age: 57 Year
  Sex: Female

DRUGS (1)
  1. APLISOL [Suspect]

REACTIONS (5)
  - DRUG TOXICITY [None]
  - HEADACHE [None]
  - MASS [None]
  - PRURITUS [None]
  - SWELLING [None]
